FAERS Safety Report 5871289-7 (Version None)
Quarter: 2008Q3

REPORT INFORMATION
  Report Type: 
  Country: None (occurrence: None)
  Receive Date: 20080904
  Receipt Date: 20080904
  Transmission Date: 20090109
  Serious: Yes (Other)
  Sender: FDA-Public Use
  Company Number: None

PATIENT
  Age: 14 Year
  Sex: Male
  Weight: 84.369 kg

DRUGS (4)
  1. MELATONIN - PURITAN'S PRIDE [Suspect]
     Indication: SLEEP DISORDER
     Dosage: 3MG HS PO
     Route: 048
     Dates: start: 20070801, end: 20080801
  2. MELATONIN - CVS [Suspect]
     Indication: SLEEP DISORDER
     Dosage: 3 MG HS PO
     Route: 048
     Dates: start: 20070501, end: 20070801
  3. LORATADINE [Concomitant]
  4. OMEPRAZOLE [Concomitant]

REACTIONS (6)
  - CONDITION AGGRAVATED [None]
  - FORMICATION [None]
  - HEADACHE [None]
  - MYALGIA [None]
  - PAIN [None]
  - TINNITUS [None]
